FAERS Safety Report 22090788 (Version 1)
Quarter: 2023Q1

REPORT INFORMATION
  Report Type: Spontaneous
  Country: US (occurrence: US)
  Receive Date: 20230313
  Receipt Date: 20230313
  Transmission Date: 20230418
  Serious: No
  Sender: FDA-Public Use
  Company Number: US-JNJFOC-20230320042

PATIENT
  Sex: Female
  Weight: 81.266 kg

DRUGS (1)
  1. TREMFYA [Suspect]
     Active Substance: GUSELKUMAB
     Indication: Psoriasis
     Route: 065
     Dates: start: 2019

REACTIONS (8)
  - COVID-19 [Unknown]
  - Ear infection [Unknown]
  - Skin infection [Unknown]
  - Psoriasis [Unknown]
  - Pharyngitis streptococcal [Unknown]
  - Urinary tract infection [Unknown]
  - Fungal infection [Unknown]
  - Bacterial infection [Unknown]
